FAERS Safety Report 11935486 (Version 7)
Quarter: 2018Q1

REPORT INFORMATION
  Report Type: Spontaneous
  Country: US (occurrence: US)
  Receive Date: 20160121
  Receipt Date: 20180312
  Transmission Date: 20180508
  Serious: Yes (Hospitalization)
  Sender: FDA-Public Use
  Company Number: US-PFIZER INC-2015478450

PATIENT
  Age: 77 Year
  Sex: Female
  Weight: 70 kg

DRUGS (51)
  1. FEMARA [Suspect]
     Active Substance: LETROZOLE
     Indication: BREAST CANCER METASTATIC
     Dosage: 2.5 MG, 1X/DAYONCE A DAY
     Route: 048
     Dates: start: 201502
  2. FIBERCON [Concomitant]
     Active Substance: CALCIUM POLYCARBOPHIL
     Indication: DIARRHOEA
     Dosage: 625 MG, 4X/DAY (2 IN THE MORNING AND 2 IN THE EVENING)
  3. LIDODERM [Concomitant]
     Active Substance: LIDOCAINE
     Indication: MYALGIA
     Dosage: 5 %, AS NEEDED (MAX 3 DAY)
  4. NASONEX [Concomitant]
     Active Substance: MOMETASONE FUROATE
     Dosage: UNK, AS NEEDED
  5. BUTRANS [Concomitant]
     Active Substance: BUPRENORPHINE
     Indication: PAIN
     Dosage: 15 UG, WEEKLY (TRANSDERMAL PATCH, APPLY TO SKIN/ EVERY SUNDAY: PM)
     Route: 062
  6. CALCIUM D3 [Concomitant]
     Active Substance: CALCIUM\CHOLECALCIFEROL
     Dosage: 1 DF, 2X/DAY (AM AFTER EATING BREAKFAST/1 EVENING AT BEDTIME/1 CALCIUM 600MG +D3/)
  7. TIZANIDINE. [Concomitant]
     Active Substance: TIZANIDINE
     Indication: PAIN
  8. GABAPENTIN. [Concomitant]
     Active Substance: GABAPENTIN
     Indication: MUSCLE SPASMS
     Dosage: 300 MG, UNK (PM)
  9. TURMERIC [Concomitant]
     Active Substance: HERBALS\TURMERIC
     Indication: ANTIOXIDANT THERAPY
     Dosage: 500 MG, 1X/DAY (EVENING AT BEDTIME)
  10. FAMOTIDINE. [Concomitant]
     Active Substance: FAMOTIDINE
     Indication: GASTROOESOPHAGEAL REFLUX DISEASE
     Dosage: 20 MG, AS NEEDED (ACID REDUCER 1 OR 2X^S DAILY)
  11. HYDROCODONE [Concomitant]
     Active Substance: HYDROCODONE
     Indication: PAIN
     Dosage: UNK (ALTERNATE PROBABLY)
  12. CRANBERRY. [Concomitant]
     Active Substance: CRANBERRY
     Indication: URINE ABNORMALITY
     Dosage: UNK UNK, AS NEEDED (4200MG)
  13. MUCINEX [Concomitant]
     Active Substance: GUAIFENESIN
     Indication: NASOPHARYNGITIS
     Dosage: UNK, AS NEEDED
     Route: 048
  14. GAS-X [Concomitant]
     Active Substance: DIMETHICONE
     Indication: FLATULENCE
     Dosage: TAKES PERIODICALLY
  15. AZELASTINE HCL [Concomitant]
     Active Substance: AZELASTINE HYDROCHLORIDE
     Dosage: 137 UG, AS NEEDED
     Route: 045
  16. CALCIUM D3 [Concomitant]
     Active Substance: CALCIUM\CHOLECALCIFEROL
     Indication: VITAMIN D DEFICIENCY
     Dosage: 600 MG, 1X/DAY
     Dates: start: 201502
  17. HYDROXYZINE [Concomitant]
     Active Substance: HYDROXYZINE HYDROCHLORIDE
     Indication: NASAL CONGESTION
     Dosage: 25 MG, AS NEEDED
  18. MUCINEX [Concomitant]
     Active Substance: GUAIFENESIN
     Indication: NASAL CONGESTION
  19. FIBER [Concomitant]
     Active Substance: PSYLLIUM HUSK
     Dosage: UNK, 2X/DAY (AM AFTER EATING BREAKFAST/1 EVENING AT BEDTIME/1-2 FIBER CAPSULES/)
  20. MUCINEX [Concomitant]
     Active Substance: GUAIFENESIN
     Indication: HYPERSENSITIVITY
  21. VOLTAREN [Concomitant]
     Active Substance: DICLOFENAC SODIUM
     Dosage: UNK UNK, DAILY
     Route: 061
  22. LIDEX [Concomitant]
     Active Substance: FLUOCINONIDE
     Indication: HAND DERMATITIS
     Dosage: UNK
  23. NASAL SPRAY II [Concomitant]
     Indication: HYPERSENSITIVITY
     Dosage: UNK
  24. IBRANCE [Suspect]
     Active Substance: PALBOCICLIB
     Indication: BREAST CANCER METASTATIC
     Dosage: 125 MG, CYCLIC (21 DAYS, 7 DAYS OFF)
     Route: 048
     Dates: start: 201502
  25. SYNTHROID [Concomitant]
     Active Substance: LEVOTHYROXINE SODIUM
     Indication: THYROID DISORDER
     Dosage: 125 UG, 1X/DAY (IN AM, EMPTY STOMACH + MIN. 30^ BEFORE EATING)
  26. TRAZODONE [Concomitant]
     Active Substance: TRAZODONE HYDROCHLORIDE
     Indication: PAIN
     Dosage: 50 MG, 1-2 TABLETS AT NIGHT
     Route: 048
  27. OXYCODONE [Concomitant]
     Active Substance: OXYCODONE
     Dosage: UNK, AS NEEDED (5-10 MG UP TO 4X^S DAILY)
  28. LOMOTIL [Concomitant]
     Active Substance: ATROPINE SULFATE\DIPHENOXYLATE HYDROCHLORIDE
     Dosage: 1 DF, AS NEEDED
  29. ALIGN [Concomitant]
     Active Substance: BIFIDOBACTERIUM LONGUM SUBSP. INFANTIS
     Indication: ABDOMINAL DISCOMFORT
     Dosage: UNK, AS NEEDED
  30. ASTELIN /00884002/ [Concomitant]
     Indication: HYPERSENSITIVITY
     Dosage: 1 %, AS NEEDED (SUPPOSE TO TAKE IT EVERYDAY)
     Route: 045
  31. NASONEX [Concomitant]
     Active Substance: MOMETASONE FUROATE
     Indication: HYPERSENSITIVITY
     Dosage: 550 UG, UNK (/ACT NASAL SPRAY)
     Route: 045
  32. ATARAX [Concomitant]
     Active Substance: HYDROXYZINE HYDROCHLORIDE
     Indication: PRURITUS
     Dosage: 25 MG, AS NEEDED
  33. VITAMIN D3 [Concomitant]
     Active Substance: CHOLECALCIFEROL
     Indication: IMMUNE ENHANCEMENT THERAPY
  34. OXYCODONE AND ACETAMINOPHEN [Concomitant]
     Active Substance: ACETAMINOPHEN\OXYCODONE HYDROCHLORIDE
     Indication: PAIN
     Dosage: 1 DF, AS NEEDED (OXYCODONE HYDROCHLORIDE: 5MG PARACETAMOL: 325MG)EVERY 4 HOURS)
  35. OXYCODONE AND ACETAMINOPHEN [Concomitant]
     Active Substance: ACETAMINOPHEN\OXYCODONE HYDROCHLORIDE
     Dosage: UNK (OXYCODONE: 10MG; ACETAMINOPHEN: 325MG), (NIGHTLY)
  36. IBRANCE [Suspect]
     Active Substance: PALBOCICLIB
     Dosage: 125 MG, CYCLIC (21 DAYS, 7 DAYS OFF)
     Route: 048
     Dates: start: 201502
  37. HYDROXYZINE [Concomitant]
     Active Substance: HYDROXYZINE HYDROCHLORIDE
     Indication: PRURITUS
  38. VOLTAREN [Concomitant]
     Active Substance: DICLOFENAC SODIUM
     Indication: ARTHRALGIA
     Dosage: 1 %, AS NEEDED
     Route: 061
  39. ZETONNA [Concomitant]
     Active Substance: CICLESONIDE
     Dosage: UNK (AS NEEDED)
  40. CORDRAN [Concomitant]
     Active Substance: FLURANDRENOLIDE
     Indication: SKIN DISORDER
     Dosage: .05 %, UNK
  41. TURMERIC [Concomitant]
     Active Substance: HERBALS\TURMERIC
     Indication: INFLAMMATION
     Dosage: 538 MG, 1X/DAY
     Dates: start: 2015
  42. VITAMIN B12 [Concomitant]
     Active Substance: CYANOCOBALAMIN
     Dosage: UNK UNK, MONTHLY
  43. OXYCODONE [Concomitant]
     Active Substance: OXYCODONE
     Indication: PAIN
     Dosage: 5 MG, EVERY 4 HRS
  44. TIZANIDINE. [Concomitant]
     Active Substance: TIZANIDINE
     Indication: MUSCLE SPASMS
     Dosage: 2 MG, 1X/DAY (AT NIGHT), (JUST QUIT TOTALLY USELESS)
     Dates: end: 20160808
  45. HYDROXYZINE [Concomitant]
     Active Substance: HYDROXYZINE HYDROCHLORIDE
     Indication: HYPERSENSITIVITY
  46. LOMOTIL [Concomitant]
     Active Substance: ATROPINE SULFATE\DIPHENOXYLATE HYDROCHLORIDE
     Indication: DIARRHOEA
     Dosage: 2.5-0.025MG, AS NEEDED
  47. NASCOBAL [Concomitant]
     Active Substance: CYANOCOBALAMIN
     Dosage: 500 UG, WEEKLY(IN ONE NOSTRIL, USE ON WEDNESDAYS)
  48. BIOTIN [Concomitant]
     Active Substance: BIOTIN
     Indication: ALOPECIA
     Dosage: 10000 UG, 1X/DAY (AM AFTER EATING BREAKFAST:)
  49. FIBER [Concomitant]
     Active Substance: PSYLLIUM HUSK
     Dosage: 2 DF, DAILY (2 PER NIGHT) (PM)
  50. VITAMIN D3 [Concomitant]
     Active Substance: CHOLECALCIFEROL
     Indication: BONE DISORDER
     Dosage: 1000 IU, 1X/DAY (EVENING AT BEDTIME)
     Dates: start: 2015
  51. SIMETHICONE (DIMETHICONE) [Concomitant]
     Active Substance: DIMETHICONE
     Indication: FLATULENCE
     Dosage: 125 MG, AS NEEDED

REACTIONS (44)
  - Asthenia [Not Recovered/Not Resolved]
  - Alopecia [Not Recovered/Not Resolved]
  - Fall [Unknown]
  - Skin atrophy [Unknown]
  - Weight increased [Not Recovered/Not Resolved]
  - Fatigue [Not Recovered/Not Resolved]
  - Nausea [Not Recovered/Not Resolved]
  - Eating disorder [Not Recovered/Not Resolved]
  - Clumsiness [Unknown]
  - Muscular weakness [Unknown]
  - Middle insomnia [Unknown]
  - Condition aggravated [Not Recovered/Not Resolved]
  - Pain in extremity [Not Recovered/Not Resolved]
  - Epistaxis [Not Recovered/Not Resolved]
  - Lacrimation increased [Not Recovered/Not Resolved]
  - Skin exfoliation [Unknown]
  - Vitamin B12 decreased [Not Recovered/Not Resolved]
  - Arthralgia [Unknown]
  - Dry skin [Not Recovered/Not Resolved]
  - Pruritus [Unknown]
  - Muscle spasms [Unknown]
  - Somnolence [Unknown]
  - Chills [Unknown]
  - Pain [Not Recovered/Not Resolved]
  - Neoplasm progression [Unknown]
  - Weight fluctuation [Not Recovered/Not Resolved]
  - Feeling of body temperature change [Unknown]
  - Constipation [Unknown]
  - Micturition urgency [Unknown]
  - Food craving [Not Recovered/Not Resolved]
  - Rotator cuff syndrome [Not Recovered/Not Resolved]
  - Skin fissures [Unknown]
  - Vision blurred [Unknown]
  - Musculoskeletal disorder [Unknown]
  - Insomnia [Not Recovered/Not Resolved]
  - Nail ridging [Unknown]
  - Ocular hyperaemia [Recovered/Resolved]
  - Decreased appetite [Not Recovered/Not Resolved]
  - Disturbance in attention [Unknown]
  - Impaired quality of life [Unknown]
  - Discomfort [Unknown]
  - Myalgia [Unknown]
  - Skin haemorrhage [Unknown]
  - Hot flush [Unknown]

NARRATIVE: CASE EVENT DATE: 2015
